FAERS Safety Report 12917603 (Version 4)
Quarter: 2016Q4

REPORT INFORMATION
  Report Type: Report from Study
  Country: US (occurrence: US)
  Receive Date: 20161107
  Receipt Date: 20161223
  Transmission Date: 20170207
  Serious: Yes (Other)
  Sender: FDA-Public Use
  Company Number: US-BRISTOL-MYERS SQUIBB COMPANY-BMS-2016-087475

PATIENT
  Sex: Male

DRUGS (2)
  1. NIVOLUMAB [Suspect]
     Active Substance: NIVOLUMAB
     Indication: LUNG NEOPLASM MALIGNANT
     Route: 042
  2. DOCETAXEL. [Suspect]
     Active Substance: DOCETAXEL
     Indication: LUNG NEOPLASM MALIGNANT
     Route: 065

REACTIONS (12)
  - Fatigue [Unknown]
  - Vomiting [Unknown]
  - Drug ineffective [Unknown]
  - Dehydration [Unknown]
  - Malignant neoplasm progression [Unknown]
  - Dyspnoea [Recovering/Resolving]
  - Diarrhoea [Unknown]
  - Constipation [Unknown]
  - Alopecia [Unknown]
  - Nausea [Unknown]
  - Aphonia [Recovering/Resolving]
  - Bone pain [Unknown]
